FAERS Safety Report 11325960 (Version 2)
Quarter: 2015Q3

REPORT INFORMATION
  Report Type: Spontaneous
  Country: DE (occurrence: DE)
  Receive Date: 20150731
  Receipt Date: 20150806
  Transmission Date: 20151125
  Serious: Yes (Death)
  Sender: FDA-Public Use
  Company Number: DE-UNITED THERAPEUTICS-UNT-2015-009026

PATIENT
  Age: 69 Year
  Sex: Male
  Weight: 68 kg

DRUGS (1)
  1. REMODULIN [Suspect]
     Active Substance: TREPROSTINIL
     Indication: PRODUCT USED FOR UNKNOWN INDICATION
     Dosage: UNK
     Route: 041
     Dates: start: 20150721

REACTIONS (3)
  - Death [Fatal]
  - Device dislocation [Unknown]
  - Drug dose omission [Unknown]

NARRATIVE: CASE EVENT DATE: 201507
